FAERS Safety Report 12048412 (Version 3)
Quarter: 2016Q2

REPORT INFORMATION
  Report Type: Spontaneous
  Country: JP (occurrence: JP)
  Receive Date: 20160209
  Receipt Date: 20160404
  Transmission Date: 20160815
  Serious: Yes (Hospitalization, Other)
  Sender: FDA-Public Use
  Company Number: JP-AMGEN-JPNSP2016015573

PATIENT
  Age: 56 Year
  Sex: Male
  Weight: 58 kg

DRUGS (9)
  1. EMEND [Concomitant]
     Active Substance: APREPITANT
     Indication: PROPHYLAXIS OF NAUSEA AND VOMITING
     Dosage: 12.5 MG, QD
     Route: 048
     Dates: start: 20160119, end: 20160119
  2. OXYCONTIN [Concomitant]
     Active Substance: OXYCODONE HYDROCHLORIDE
     Indication: PAIN MANAGEMENT
     Dosage: 10 MG, BID
     Route: 048
     Dates: start: 20151124
  3. FERROUS SODIUM CITRATE [Concomitant]
     Active Substance: SODIUM FERROUS CITRATE
     Indication: ANAEMIA
     Dosage: 100 MG, BID
     Route: 048
     Dates: start: 20160105
  4. CALCIUM LEVOFOLINATE [Suspect]
     Active Substance: LEVOLEUCOVORIN CALCIUM
     Indication: RECTAL CANCER RECURRENT
     Dosage: 300 MG, Q2WEEKS
     Route: 041
     Dates: start: 20160119, end: 20160119
  5. IRINOTECAN HYDROCHLORIDE. [Suspect]
     Active Substance: IRINOTECAN HYDROCHLORIDE
     Indication: RECTAL CANCER RECURRENT
     Dosage: 240 MG, Q2WEEKS
     Route: 041
     Dates: start: 20160119, end: 20160119
  6. VECTIBIX [Suspect]
     Active Substance: PANITUMUMAB
     Indication: RECTAL CANCER RECURRENT
     Dosage: 400 MG, Q2WK
     Route: 041
     Dates: start: 20150119
  7. SOLU-MEDROL [Concomitant]
     Active Substance: METHYLPREDNISOLONE SODIUM SUCCINATE
     Indication: ALLERGY PROPHYLAXIS
     Dosage: 125 MG, QD
     Route: 041
     Dates: start: 20160119, end: 20160120
  8. ALOXI [Concomitant]
     Active Substance: PALONOSETRON HYDROCHLORIDE
     Indication: PROPHYLAXIS OF NAUSEA AND VOMITING
     Dosage: 0.75 MG, Q2WEEKS
     Route: 041
     Dates: start: 20160119, end: 20160119
  9. DECADRON                           /00016002/ [Concomitant]
     Active Substance: DEXAMETHASONE
     Indication: ALLERGY PROPHYLAXIS
     Dosage: 6.6 MG, Q2WEEKS
     Route: 041
     Dates: start: 20160119, end: 20160119

REACTIONS (6)
  - Diarrhoea [Recovering/Resolving]
  - Urticaria [Unknown]
  - Dyspnoea [Recovered/Resolved]
  - Neutropenia [Recovered/Resolved]
  - Flushing [Unknown]
  - Stomatitis [Recovering/Resolving]

NARRATIVE: CASE EVENT DATE: 20160119
